FAERS Safety Report 8208040-1 (Version None)
Quarter: 2012Q1

REPORT INFORMATION
  Report Type: 
  Country: None (occurrence: None)
  Receive Date: 20120314
  Receipt Date: 20120306
  Transmission Date: 20120608
  Serious: Yes (Other)
  Sender: FDA-Public Use
  Company Number: US-FRI-1000028879

PATIENT
  Age: 55 Year
  Sex: Female

DRUGS (4)
  1. SYNTHROID [Concomitant]
     Indication: HYPOTHYROIDISM
  2. VIIBRYD [Suspect]
     Dosage: 20 MG
     Dates: start: 20120125
  3. CEFTIN [Suspect]
     Indication: SINUSITIS
     Dates: start: 20120201, end: 20120302
  4. VIIBRYD [Suspect]
     Indication: DEPRESSION
     Dosage: 10 MG
     Dates: start: 20120118, end: 20120124

REACTIONS (3)
  - ABDOMINAL PAIN [None]
  - SINUSITIS [None]
  - DIARRHOEA [None]
